FAERS Safety Report 7726639-3 (Version None)
Quarter: 2011Q3

REPORT INFORMATION
  Report Type: 
  Country: None (occurrence: None)
  Receive Date: 20110902
  Receipt Date: 20110824
  Transmission Date: 20111222
  Serious: Yes (Hospitalization, Other)
  Sender: FDA-Public Use
  Company Number: PHNR2005AU01244

PATIENT
  Sex: Female

DRUGS (8)
  1. PAROXETINE HCL [Concomitant]
     Indication: DEPRESSION
     Dosage: 20 MG, DAILY
     Route: 048
     Dates: start: 19960101
  2. VALPROATE SODIUM [Concomitant]
  3. CLOZAPINE [Suspect]
     Dosage: 25 MG, UNK
  4. CEPHALEXIN [Concomitant]
     Indication: SOFT TISSUE INFECTION
     Dosage: 500 MG, BID
     Route: 048
     Dates: start: 20110202, end: 20110215
  5. CLONAZEPAM [Concomitant]
     Indication: EPILEPSY
     Dosage: 0.5 MG, BID
     Dates: start: 19860101
  6. CLOZAPINE [Suspect]
     Indication: SCHIZOPHRENIA
     Dosage: 200 MG
     Dates: start: 20040701, end: 20050810
  7. CLOZAPINE [Suspect]
     Dosage: 250 MG, DAILY
     Dates: start: 20050913
  8. PANTOPRAZOLE [Concomitant]
     Indication: GASTROOESOPHAGEAL REFLUX DISEASE
     Dosage: 40 MG, DAILY
     Route: 048

REACTIONS (33)
  - ULTRASOUND ABDOMEN ABNORMAL [None]
  - MEMORY IMPAIRMENT [None]
  - LIVER DISORDER [None]
  - ASPARTATE AMINOTRANSFERASE INCREASED [None]
  - BLOOD TRIGLYCERIDES INCREASED [None]
  - CEREBRAL ATROPHY [None]
  - HIATUS HERNIA [None]
  - BLOOD PHOSPHORUS INCREASED [None]
  - GAMMA-GLUTAMYLTRANSFERASE INCREASED [None]
  - BLOOD CHOLESTEROL INCREASED [None]
  - HYPERCHOLESTEROLAEMIA [None]
  - NAUSEA [None]
  - HEPATIC STEATOSIS [None]
  - MALAISE [None]
  - CHOLESTASIS [None]
  - BLOOD CALCIUM INCREASED [None]
  - BLOOD ALKALINE PHOSPHATASE INCREASED [None]
  - ALANINE AMINOTRANSFERASE INCREASED [None]
  - PSYCHOTIC DISORDER [None]
  - SEXUALLY TRANSMITTED DISEASE [None]
  - ABDOMINAL HERNIA [None]
  - NEUTROPENIA [None]
  - RED BLOOD CELL SEDIMENTATION RATE INCREASED [None]
  - HYPERTRIGLYCERIDAEMIA [None]
  - HEADACHE [None]
  - PROTEIN TOTAL INCREASED [None]
  - BLOOD URIC ACID INCREASED [None]
  - AGRANULOCYTOSIS [None]
  - WEIGHT INCREASED [None]
  - VOMITING [None]
  - NUCLEAR MAGNETIC RESONANCE IMAGING BRAIN ABNORMAL [None]
  - HEPATIC ENZYME INCREASED [None]
  - GOUT [None]
